FAERS Safety Report 18341742 (Version 1)
Quarter: 2020Q4

REPORT INFORMATION
  Report Type: Spontaneous
  Country: US (occurrence: US)
  Receive Date: 20201005
  Receipt Date: 20201005
  Transmission Date: 20210113
  Serious: Yes (Other)
  Sender: FDA-Public Use
  Company Number: US-AMGEN-USASP2020158898

PATIENT

DRUGS (4)
  1. ERENUMAB [Suspect]
     Active Substance: ERENUMAB
     Indication: MIGRAINE
     Dosage: 70 MILLIGRAM, QMO
     Route: 058
  2. ERENUMAB [Suspect]
     Active Substance: ERENUMAB
     Dosage: 140 MILLIGRAM, QMO
     Route: 058
  3. FREMANEZUMAB VFRM [Suspect]
     Active Substance: FREMANEZUMAB-VFRM
     Indication: MIGRAINE
     Route: 058
  4. GALCANEZUMAB GNLM [Suspect]
     Active Substance: GALCANEZUMAB-GNLM
     Indication: MIGRAINE
     Route: 058

REACTIONS (12)
  - Hypertension [Unknown]
  - Dyspnoea [Unknown]
  - Cystitis interstitial [Unknown]
  - Rash [Unknown]
  - Erythema multiforme [Unknown]
  - Injection site reaction [Unknown]
  - Adverse event [Unknown]
  - Headache [Unknown]
  - Gastrointestinal bacterial overgrowth [Unknown]
  - Alopecia [Unknown]
  - Therapy non-responder [Unknown]
  - Constipation [Unknown]
